FAERS Safety Report 9615882 (Version 1)
Quarter: 2013Q4

REPORT INFORMATION
  Report Type: Spontaneous
  Country: US (occurrence: US)
  Receive Date: 20131011
  Receipt Date: 20131011
  Transmission Date: 20140711
  Serious: No
  Sender: FDA-Public Use
  Company Number: US-PURDUE-USA-2013-0098808

PATIENT
  Age: 46 Year
  Sex: Female

DRUGS (1)
  1. BUTRANS [Suspect]
     Indication: PAIN
     Dosage: 10 MCG, WEEKLY
     Route: 062
     Dates: start: 20130206, end: 20130211

REACTIONS (13)
  - Somnolence [Unknown]
  - Sedation [Recovered/Resolved]
  - Dizziness [Unknown]
  - Syncope [Recovered/Resolved]
  - Nausea [Not Recovered/Not Resolved]
  - Vomiting [Recovered/Resolved]
  - Malaise [Unknown]
  - Application site pruritus [Not Recovered/Not Resolved]
  - Application site erythema [Not Recovered/Not Resolved]
  - Application site irritation [Not Recovered/Not Resolved]
  - Dry mouth [Not Recovered/Not Resolved]
  - Application site rash [Not Recovered/Not Resolved]
  - Pruritus generalised [Not Recovered/Not Resolved]
